FAERS Safety Report 5200150-6 (Version None)
Quarter: 2007Q1

REPORT INFORMATION
  Report Type: 
  Country: None (occurrence: None)
  Receive Date: 20070103
  Receipt Date: 20061218
  Transmission Date: 20070707
  Serious: Yes (Hospitalization)
  Sender: FDA-Public Use
  Company Number: 2006BI014378

PATIENT
  Age: 33 Year
  Sex: Female

DRUGS (5)
  1. AVONEX [Suspect]
     Indication: MULTIPLE SCLEROSIS
     Dosage: 30 UG; QW; IM
     Route: 030
     Dates: start: 20061004, end: 20061004
  2. CYMBALTA [Concomitant]
  3. DETROL LA [Concomitant]
  4. TIZANIDINE HCL [Concomitant]
  5. MIRTAZAPINE [Concomitant]

REACTIONS (3)
  - DRUG HYPERSENSITIVITY [None]
  - FALL [None]
  - MUSCULOSKELETAL STIFFNESS [None]
